FAERS Safety Report 10891427 (Version 1)
Quarter: 2015Q1

REPORT INFORMATION
  Report Type: Spontaneous
  Country: US (occurrence: US)
  Receive Date: 20150306
  Receipt Date: 20150306
  Transmission Date: 20150721
  Serious: Yes (Disabling)
  Sender: FDA-Public Use
  Company Number: US-BEH-2015049252

PATIENT
  Age: 51 Year
  Sex: Male

DRUGS (1)
  1. INTRAVENOUS IMMUNE GLOBULIN 5 %(OCTAPHARM) [Suspect]
     Active Substance: HUMAN IMMUNOGLOBULIN G
     Indication: IMMUNODEFICIENCY COMMON VARIABLE

REACTIONS (5)
  - Hypertension [Recovered/Resolved]
  - Arthralgia [Recovered/Resolved]
  - Bedridden [Recovered/Resolved]
  - Back pain [Recovered/Resolved]
  - Impaired work ability [Recovered/Resolved]
